FAERS Safety Report 26150993 (Version 1)
Quarter: 2025Q4

REPORT INFORMATION
  Report Type: Spontaneous
  Country: US (occurrence: US)
  Receive Date: 20251212
  Receipt Date: 20251212
  Transmission Date: 20260118
  Serious: No
  Sender: ELI LILLY AND COMPANY
  Company Number: US-ELI_LILLY_AND_COMPANY-US202512011890

PATIENT
  Age: 47 Year
  Sex: Male

DRUGS (2)
  1. ZEPBOUND [Suspect]
     Active Substance: TIRZEPATIDE
     Indication: Hyperlipidaemia
     Dosage: 2.5 MG, UNKNOWN
     Route: 065
     Dates: start: 20251111
  2. ZEPBOUND [Suspect]
     Active Substance: TIRZEPATIDE
     Indication: Palpitations

REACTIONS (2)
  - Hunger [Unknown]
  - Off label use [Unknown]

NARRATIVE: CASE EVENT DATE: 20251204
